FAERS Safety Report 15767110 (Version 3)
Quarter: 2019Q2

REPORT INFORMATION
  Report Type: Report from Study
  Country: ZA (occurrence: ZA)
  Receive Date: 20181227
  Receipt Date: 20190603
  Transmission Date: 20190711
  Serious: Yes (Hospitalization, Other)
  Sender: FDA-Public Use
  Company Number: ZA-SA-2018SA333687

PATIENT
  Age: 61 Year
  Sex: Female

DRUGS (7)
  1. GLUCOPHAGE [Concomitant]
     Active Substance: METFORMIN HYDROCHLORIDE
     Dosage: 850 MG, TID (AFTER SUPPER, AFTER LUNCH AND AFTER BREAKFAST)
     Dates: start: 20181123
  2. OPTISULIN (INSULIN GLARGINE) [Suspect]
     Active Substance: INSULIN GLARGINE
     Dosage: 46 U, BT
     Dates: start: 20181121
  3. ADCO-SIMVASTATIN [Concomitant]
     Active Substance: SIMVASTATIN
     Dosage: 20 MG, QD
     Dates: start: 20181130
  4. NO STUDY DRUG GIVEN [Suspect]
     Active Substance: UNSPECIFIED INGREDIENT
  5. NOVORAPID [Concomitant]
     Active Substance: INSULIN ASPART
     Dosage: 20 U, TID (BEFORE BREAKFAST, BEFORE LUNCH AND BEFORE SUPPER)
     Dates: start: 20181121
  6. ENAP [ENALAPRIL MALEATE] [Concomitant]
     Dosage: 5 MG, BID
     Dates: start: 20181130
  7. PURICOS [Concomitant]
     Active Substance: ALLOPURINOL
     Dosage: 300 MG, QD
     Dates: start: 20181130

REACTIONS (8)
  - Myelopathy [Unknown]
  - Vomiting [Not Recovered/Not Resolved]
  - Dehydration [Not Recovered/Not Resolved]
  - Hospitalisation [Unknown]
  - Tooth abscess [Not Recovered/Not Resolved]
  - Musculoskeletal discomfort [Unknown]
  - Swelling face [Not Recovered/Not Resolved]
  - Diarrhoea [Not Recovered/Not Resolved]

NARRATIVE: CASE EVENT DATE: 20190507
